FAERS Safety Report 9361127 (Version 1)
Quarter: 2013Q2

REPORT INFORMATION
  Report Type: Spontaneous
  Country: US (occurrence: None)
  Receive Date: 20130618
  Receipt Date: 20130618
  Transmission Date: 20140414
  Serious: Yes (Other)
  Sender: FDA-Public Use
  Company Number: JPI-P-032866

PATIENT
  Age: 28 Year
  Sex: Female

DRUGS (1)
  1. XYREM [Suspect]
     Indication: NARCOLEPSY
     Dosage: 4.5 GM (2.25 GM 2 IN 1 D), ORAL
     Route: 048
     Dates: start: 20130415

REACTIONS (3)
  - Victim of sexual abuse [None]
  - Victim of crime [None]
  - Drug diversion [None]
